FAERS Safety Report 15845909 (Version 1)
Quarter: 2019Q1

REPORT INFORMATION
  Report Type: Spontaneous
  Country: US (occurrence: US)
  Receive Date: 20190120
  Receipt Date: 20190120
  Transmission Date: 20190417
  Serious: No
  Sender: FDA-Public Use
  Company Number: US-TEVA-2018-US-993318

PATIENT
  Sex: Male

DRUGS (1)
  1. METOPROLOL SUCCINATE EXTENDED RELEASE TABLETS ACTAVIS [Suspect]
     Active Substance: METOPROLOL SUCCINATE
     Route: 065

REACTIONS (9)
  - Pain [Unknown]
  - Feeling abnormal [Unknown]
  - Abdominal pain upper [Unknown]
  - Nausea [Unknown]
  - Gait inability [Unknown]
  - Eye pruritus [Unknown]
  - Hangover [Unknown]
  - Impaired driving ability [Unknown]
  - Dizziness [Unknown]
